FAERS Safety Report 11496448 (Version 1)
Quarter: 2015Q3

REPORT INFORMATION
  Report Type: Spontaneous
  Country: US (occurrence: US)
  Receive Date: 20150911
  Receipt Date: 20150911
  Transmission Date: 20151125
  Serious: No
  Sender: FDA-Public Use
  Company Number: US-009507513-1509USA001769

PATIENT
  Sex: Female

DRUGS (1)
  1. ZETIA [Suspect]
     Active Substance: EZETIMIBE
     Indication: CHEST PAIN
     Dosage: 10 MG ONCE A DAY
     Route: 048
     Dates: start: 2010

REACTIONS (5)
  - Product use issue [Unknown]
  - Drug dose omission [Unknown]
  - Skin discolouration [Recovering/Resolving]
  - Heart rate increased [Recovering/Resolving]
  - Chest pain [Recovering/Resolving]
